FAERS Safety Report 6664543-2 (Version None)
Quarter: 2010Q2

REPORT INFORMATION
  Report Type: 
  Country: None (occurrence: None)
  Receive Date: 20100401
  Receipt Date: 20100319
  Transmission Date: 20101027
  Serious: Yes (Death)
  Sender: FDA-Public Use
  Company Number: FR-PFIZER INC-2009249811

PATIENT
  Age: 76 Year
  Sex: Male

DRUGS (14)
  1. FLUOROURACIL [Suspect]
     Indication: GASTRIC CANCER
     Dosage: 7800 MG, CYCLIC
     Route: 041
  2. IRINOTECAN HYDROCHLORIDE [Suspect]
     Indication: GASTRIC CANCER
     Dosage: 600 MG, CYCLIC
     Route: 042
  3. EPIRUBICIN HYDROCHLORIDE [Suspect]
     Indication: GASTRIC CANCER
     Dosage: 85 MG, CYCLIC
     Dates: start: 20070927
  4. CISPLATIN [Suspect]
     Indication: GASTRIC CANCER
     Dosage: 100 MG, CYCLIC
     Dates: start: 20070927
  5. CAPECITABINE [Suspect]
     Indication: GASTRIC CANCER
     Dosage: 28000 MG, CYCLIC
     Dates: start: 20070927
  6. FOLINIC ACID [Suspect]
     Indication: GASTRIC CANCER
     Dosage: 700 MG, CYCLIC
  7. LARGACTIL [Concomitant]
     Indication: NAUSEA
     Dosage: 20 DROPS PER DAY
     Route: 048
  8. KALEORID [Concomitant]
     Indication: HYPOKALAEMIA
     Dosage: 1 DF, 3X/DAY
     Route: 048
  9. DOMPERIDONE [Concomitant]
     Indication: NAUSEA
     Dosage: 1 DF, 3X/DAY
     Route: 048
  10. PAROXETINE [Concomitant]
     Indication: DEPRESSION
     Dosage: 1 DF, 1X/DAY
     Route: 048
  11. ALLOPURINOL [Concomitant]
     Indication: GOUT
     Dosage: 1 DF, 1X/DAY
     Route: 048
  12. ALPRAZOLAM [Concomitant]
     Indication: ANXIETY
     Dosage: 1 DF, 1X/DAY
     Route: 048
  13. NEXIUM [Concomitant]
     Indication: PROPHYLAXIS AGAINST GASTROINTESTINAL ULCER
     Dosage: 1 DF, 1X/DAY
     Route: 048
  14. PROSCAR [Concomitant]
     Indication: BENIGN PROSTATIC HYPERPLASIA
     Dosage: 1 DF, 1X/DAY
     Route: 048

REACTIONS (2)
  - DIARRHOEA [None]
  - NAUSEA [None]
